FAERS Safety Report 14608620 (Version 1)
Quarter: 2018Q1

REPORT INFORMATION
  Report Type: Spontaneous
  Country: US (occurrence: US)
  Receive Date: 20180306
  Receipt Date: 20180306
  Transmission Date: 20180509
  Serious: Yes (Hospitalization)
  Sender: FDA-Public Use
  Company Number: None

PATIENT
  Sex: Male

DRUGS (10)
  1. METHADONE [Concomitant]
     Active Substance: METHADONE HYDROCHLORIDE
  2. SIMVASTATIN. [Concomitant]
     Active Substance: SIMVASTATIN
  3. LONSURF [Suspect]
     Active Substance: TIPIRACIL HYDROCHLORIDE\TRIFLURIDINE
     Indication: COLON CANCER
     Route: 048
     Dates: start: 20180209
  4. OMEPRAZOLE. [Concomitant]
     Active Substance: OMEPRAZOLE
  5. LISINOPRIL. [Concomitant]
     Active Substance: LISINOPRIL
  6. HYDROCO/APAP [Concomitant]
     Active Substance: ACETAMINOPHEN\HYDROCODONE
  7. PRILOSEC OTC [Concomitant]
     Active Substance: OMEPRAZOLE MAGNESIUM
  8. GABAPENTIN. [Concomitant]
     Active Substance: GABAPENTIN
  9. METFORMIN [Concomitant]
     Active Substance: METFORMIN HYDROCHLORIDE
  10. DILAUDID [Concomitant]
     Active Substance: HYDROMORPHONE HYDROCHLORIDE

REACTIONS (2)
  - Stent placement [None]
  - Drug dose omission [None]
